FAERS Safety Report 25746753 (Version 1)
Quarter: 2025Q3

REPORT INFORMATION
  Report Type: Spontaneous
  Country: JP (occurrence: JP)
  Receive Date: 20250901
  Receipt Date: 20250901
  Transmission Date: 20251020
  Serious: Yes (Other)
  Sender: TEVA
  Company Number: JP-TEVA-VS-3367727

PATIENT
  Age: 80 Year
  Sex: Female

DRUGS (3)
  1. TRISENOX [Suspect]
     Active Substance: ARSENIC TRIOXIDE
     Indication: Product used for unknown indication
     Route: 042
  2. TRISENOX [Suspect]
     Active Substance: ARSENIC TRIOXIDE
     Indication: Product used for unknown indication
     Route: 042
     Dates: end: 20240920
  3. VESANOID [Suspect]
     Active Substance: TRETINOIN
     Indication: Product used for unknown indication
     Route: 048
     Dates: end: 20240920

REACTIONS (1)
  - Disease recurrence [Unknown]
